FAERS Safety Report 9354331 (Version 1)
Quarter: 2013Q2

REPORT INFORMATION
  Report Type: Spontaneous
  Country: US (occurrence: US)
  Receive Date: 20130618
  Receipt Date: 20130618
  Transmission Date: 20140414
  Serious: Yes (Other)
  Sender: FDA-Public Use
  Company Number: US-ELI_LILLY_AND_COMPANY-US201306002073

PATIENT
  Sex: Male

DRUGS (2)
  1. HUMALOG LISPRO [Suspect]
     Dosage: 24 U, TID
  2. LANTUS [Concomitant]
     Dosage: 34 U, EACH EVENING

REACTIONS (2)
  - Parkinson^s disease [Unknown]
  - Underdose [Unknown]
